FAERS Safety Report 16416196 (Version 1)
Quarter: 2019Q2

REPORT INFORMATION
  Report Type: Spontaneous
  Country: US (occurrence: US)
  Receive Date: 20190611
  Receipt Date: 20190611
  Transmission Date: 20190711
  Serious: No
  Sender: FDA-Public Use
  Company Number: US-AMNEAL PHARMACEUTICALS-2018AMN00322

PATIENT
  Sex: Female
  Weight: 74.83 kg

DRUGS (1)
  1. PRIMIDONE. [Suspect]
     Active Substance: PRIMIDONE
     Indication: ESSENTIAL TREMOR
     Dosage: 50 MG, 2X/DAY

REACTIONS (1)
  - Drug ineffective [Unknown]
